FAERS Safety Report 17937810 (Version 3)
Quarter: 2020Q3

REPORT INFORMATION
  Report Type: Report from Study
  Country: None (occurrence: US)
  Receive Date: 20200624
  Receipt Date: 20200715
  Transmission Date: 20201103
  Serious: Yes (Hospitalization, Other)
  Sender: FDA-Public Use
  Company Number: US-ABBVIE-20K-163-3454464-00

PATIENT
  Sex: Female

DRUGS (1)
  1. VENCLEXTA [Suspect]
     Active Substance: VENETOCLAX
     Indication: ACUTE MYELOID LEUKAEMIA
     Dosage: TAKE 1 TABLET BY MOUTH FOR 7 DAYS, AS DIRECTED
     Route: 048

REACTIONS (4)
  - Pneumonia [Unknown]
  - Neovascular age-related macular degeneration [Unknown]
  - Dry age-related macular degeneration [Unknown]
  - Blindness [Unknown]
